FAERS Safety Report 7942287-4 (Version None)
Quarter: 2011Q4

REPORT INFORMATION
  Report Type: 
  Country: None (occurrence: None)
  Receive Date: 20111128
  Receipt Date: 20110902
  Transmission Date: 20120403
  Serious: No
  Sender: FDA-Public Use
  Company Number: US-ABBOTT-11P-163-0851164-00

PATIENT
  Sex: Male

DRUGS (6)
  1. ANDROGEL [Suspect]
     Indication: BLOOD TESTOSTERONE DECREASED
     Dosage: 3 PUMPS DAILY
     Dates: start: 20110826
  2. VERAMYST [Concomitant]
     Indication: HYPERSENSITIVITY
  3. ASTEPRO [Concomitant]
     Indication: HYPERSENSITIVITY
  4. SINGULAIR [Concomitant]
     Indication: HYPERSENSITIVITY
  5. TOPAMAX [Concomitant]
     Indication: ANXIETY
  6. EFFEXOR XR [Concomitant]
     Indication: DEPRESSION

REACTIONS (1)
  - INSOMNIA [None]
